FAERS Safety Report 8645991 (Version 7)
Quarter: 2016Q3

REPORT INFORMATION
  Report Type: Spontaneous
  Country: US (occurrence: US)
  Receive Date: 20120702
  Receipt Date: 20160801
  Transmission Date: 20161109
  Serious: Yes (Hospitalization, Disabling, Other)
  Sender: FDA-Public Use
  Company Number: US-009507513-1206USA04947

PATIENT
  Sex: Female
  Weight: 63.95 kg

DRUGS (11)
  1. MOTRIN [Concomitant]
     Active Substance: IBUPROFEN
     Indication: ARTHRALGIA
  2. CORTICOSTEROIDS (UNSPECIFIED) [Concomitant]
     Active Substance: UNSPECIFIED INGREDIENT
     Indication: PRODUCT USED FOR UNKNOWN INDICATION
     Dosage: UNK, UNKNOWN
     Route: 065
     Dates: start: 1994, end: 2007
  3. MOTRIN [Concomitant]
     Active Substance: IBUPROFEN
     Indication: PAIN IN EXTREMITY
     Dosage: UNK, UNKNOWN
     Route: 065
  4. CORTISONE [Concomitant]
     Active Substance: CORTISONE\HYDROCORTISONE
     Indication: ARTHRALGIA
     Dosage: UNK, UNKNOWN
     Route: 065
  5. FOSAMAX [Suspect]
     Active Substance: ALENDRONATE SODIUM
     Dosage: 70 MG, QW
     Route: 048
     Dates: start: 20011120
  6. FOSAMAX [Suspect]
     Active Substance: ALENDRONATE SODIUM
     Dosage: 70 MG, QW
     Route: 048
     Dates: start: 20080602
  7. VITAMINS (UNSPECIFIED) [Concomitant]
     Active Substance: VITAMINS
     Indication: PRODUCT USED FOR UNKNOWN INDICATION
     Dosage: UNK, QD
     Route: 065
     Dates: start: 1990, end: 2012
  8. FOSAMAX [Suspect]
     Active Substance: ALENDRONATE SODIUM
     Indication: OSTEOPOROSIS
     Dosage: UNK, UNKNOWN
     Route: 048
     Dates: start: 1997, end: 20080529
  9. FOSAMAX [Suspect]
     Active Substance: ALENDRONATE SODIUM
     Dosage: 40 MG, 2 Q SUNDAY
     Route: 048
     Dates: start: 20000904
  10. SELECTIVE ESTROGEN RECEPTOR MODULATOR (UNSPECIFIED) [Concomitant]
     Indication: PRODUCT USED FOR UNKNOWN INDICATION
     Dosage: UNK, UNKNOWN
     Route: 065
     Dates: start: 1990, end: 2008
  11. RECLAST [Concomitant]
     Active Substance: ZOLEDRONIC ACID
     Indication: OSTEOPOROSIS
     Dosage: UNK, UNKNOWN
     Route: 065

REACTIONS (21)
  - Bone lesion [Unknown]
  - Oropharyngeal pain [Unknown]
  - Fall [Unknown]
  - Bursitis [Not Recovered/Not Resolved]
  - Seasonal allergy [Unknown]
  - Low turnover osteopathy [Unknown]
  - Breast cyst [Unknown]
  - Internal fixation of fracture [Unknown]
  - Arthropathy [Unknown]
  - Musculoskeletal pain [Unknown]
  - Arthralgia [Not Recovered/Not Resolved]
  - Breast cyst excision [Unknown]
  - Anaemia [Unknown]
  - Asthma [Unknown]
  - Inappropriate schedule of drug administration [Unknown]
  - Osteoporosis [Unknown]
  - Insomnia [Unknown]
  - Femur fracture [Unknown]
  - Vitamin D deficiency [Unknown]
  - Joint crepitation [Unknown]
  - Medical device pain [Unknown]

NARRATIVE: CASE EVENT DATE: 20000904
